FAERS Safety Report 5636915-6 (Version None)
Quarter: 2008Q1

REPORT INFORMATION
  Report Type: 
  Country: None (occurrence: None)
  Receive Date: 20080225
  Receipt Date: 20080212
  Transmission Date: 20080703
  Serious: Yes (Other)
  Sender: FDA-Public Use
  Company Number: NO-ROCHE-547065

PATIENT
  Age: 37 Year
  Sex: Female

DRUGS (1)
  1. ROACCUTAN [Suspect]
     Indication: ACNE
     Dosage: DOSAGE REGIMEN: 40 MG X 2
     Route: 048
     Dates: start: 20070327, end: 20070529

REACTIONS (1)
  - ABORTION INDUCED [None]
